FAERS Safety Report 6559946-0 (Version None)
Quarter: 2010Q1

REPORT INFORMATION
  Report Type: 
  Country: None (occurrence: None)
  Receive Date: 20100129
  Receipt Date: 20091013
  Transmission Date: 20100710
  Serious: No
  Sender: FDA-Public Use
  Company Number: US-ABBOTT-09P-163-0598065-00

PATIENT
  Sex: Female

DRUGS (13)
  1. HUMIRA [Suspect]
     Indication: CROHN'S DISEASE
     Dates: start: 20090624
  2. ASACOL [Concomitant]
     Indication: DRUG USE FOR UNKNOWN INDICATION
  3. KLOR-CON [Concomitant]
     Indication: DRUG USE FOR UNKNOWN INDICATION
  4. ENTCORT [Concomitant]
     Indication: DRUG USE FOR UNKNOWN INDICATION
  5. RANITIDINE [Concomitant]
     Indication: DRUG USE FOR UNKNOWN INDICATION
  6. FOLIC ACID [Concomitant]
     Indication: DRUG USE FOR UNKNOWN INDICATION
  7. FERROUS [Concomitant]
     Indication: DRUG USE FOR UNKNOWN INDICATION
  8. IMURAN [Concomitant]
     Indication: DRUG USE FOR UNKNOWN INDICATION
  9. LOMOTIL [Concomitant]
     Indication: DRUG USE FOR UNKNOWN INDICATION
  10. VALTREX [Concomitant]
     Indication: DRUG USE FOR UNKNOWN INDICATION
  11. VITAMIN B-12 [Concomitant]
     Indication: DRUG USE FOR UNKNOWN INDICATION
  12. LUNESTA [Concomitant]
     Indication: DRUG USE FOR UNKNOWN INDICATION
  13. FLEXERIL [Concomitant]
     Indication: DRUG USE FOR UNKNOWN INDICATION

REACTIONS (2)
  - DIZZINESS [None]
  - DRUG DOSE OMISSION [None]
